FAERS Safety Report 5918384-1 (Version None)
Quarter: 2008Q4

REPORT INFORMATION
  Report Type: 
  Country: None (occurrence: None)
  Receive Date: 20081010
  Receipt Date: 20080930
  Transmission Date: 20090506
  Serious: Yes (Hospitalization)
  Sender: FDA-Public Use
  Company Number: 2008BI021837

PATIENT
  Age: 30 Year
  Sex: Female
  Weight: 65.7716 kg

DRUGS (3)
  1. AVONEX [Suspect]
     Indication: MULTIPLE SCLEROSIS
     Dosage: 15 UG; QW; IM
     Route: 030
     Dates: start: 20080821, end: 20080821
  2. . [Concomitant]
  3. . [Concomitant]

REACTIONS (5)
  - AMNESIA [None]
  - CONCUSSION [None]
  - FALL [None]
  - GRAND MAL CONVULSION [None]
  - HAEMATOMA [None]
